FAERS Safety Report 8812942 (Version 1)
Quarter: 2012Q4

REPORT INFORMATION
  Report Type: 
  Country: US (occurrence: US)
  Receive Date: 20120927
  Receipt Date: 20120927
  Transmission Date: 20130627
  Serious: No
  Sender: FDA-Public Use
  Company Number: US-AMGEN-USASP2012034459

PATIENT
  Age: 70 Year
  Sex: Female
  Weight: 48 kg

DRUGS (6)
  1. PROLIA [Suspect]
     Indication: OSTEOPOROSIS
     Dosage: 60 mg, q6mo
     Dates: start: 20120216
  2. COMBIVENT [Concomitant]
     Dosage: UNK UNK, prn
  3. ADVAIR [Concomitant]
     Indication: ASTHMA
     Dosage: UNK UNK, bid
  4. SPIRIVA [Concomitant]
     Dosage: UNK
  5. BABY ASPIRIN [Concomitant]
     Dosage: UNK
  6. BRONKAID [Concomitant]
     Dosage: UNK

REACTIONS (2)
  - Rash papular [Not Recovered/Not Resolved]
  - Erythema [Not Recovered/Not Resolved]
